FAERS Safety Report 8217681-7 (Version None)
Quarter: 2012Q1

REPORT INFORMATION
  Report Type: 
  Country: None (occurrence: None)
  Receive Date: 20120315
  Receipt Date: 20120306
  Transmission Date: 20120608
  Serious: Yes (Other)
  Sender: FDA-Public Use
  Company Number: AUR-APL-2012-01292

PATIENT
  Sex: Female
  Weight: 63 kg

DRUGS (1)
  1. MIRTAZAPINE [Suspect]
     Indication: ANXIETY
     Dosage: (15 MG), ORAL
     Route: 048
     Dates: start: 20120119, end: 20120126

REACTIONS (1)
  - WHEEZING [None]
